FAERS Safety Report 7281819-9 (Version None)
Quarter: 2011Q1

REPORT INFORMATION
  Report Type: 
  Country: None (occurrence: None)
  Receive Date: 20110208
  Receipt Date: 20110201
  Transmission Date: 20110831
  Serious: Yes (Other)
  Sender: FDA-Public Use
  Company Number: HU-PFIZER INC-2011023602

PATIENT
  Age: 84 Year
  Sex: Male
  Weight: 105 kg

DRUGS (14)
  1. TENAXUM [Concomitant]
     Dosage: UNK MG, UNK
  2. HUMULIN R [Concomitant]
     Dosage: UNK
  3. HUMULIN N [Concomitant]
     Dosage: UNK
  4. ASPIRIN [Concomitant]
     Dosage: UNK MG, UNK
     Dates: start: 20010101
  5. AMLODIGAMMA [Concomitant]
     Dosage: UNK MG, UNK
  6. MILURIT [Concomitant]
     Dosage: UNK MG, UNK
  7. FLUVASTATIN [Concomitant]
     Dosage: UNK
  8. LYRICA [Suspect]
     Dosage: 75 MG, 2X/DAY
     Route: 048
     Dates: start: 20101008, end: 20110105
  9. FURON [Concomitant]
     Indication: POLYURIA
     Dosage: UNK MG, UNK
  10. KALIUM [Concomitant]
     Dosage: UNK
  11. APROVEL [Concomitant]
     Dosage: UNK
  12. DOXIUM [Concomitant]
     Dosage: UNK MG, UNK
  13. MONO MACK DEPOT [Concomitant]
     Dosage: UNK
  14. THIOGAMMA [Concomitant]
     Dosage: UNK MG, UNK

REACTIONS (4)
  - SUICIDAL IDEATION [None]
  - DEPRESSED MOOD [None]
  - EYE DISCHARGE [None]
  - EYE SWELLING [None]
